FAERS Safety Report 6416231-5 (Version None)
Quarter: 2009Q4

REPORT INFORMATION
  Report Type: 
  Country: None (occurrence: None)
  Receive Date: 20091027
  Receipt Date: 20091022
  Transmission Date: 20100525
  Serious: Yes (Other)
  Sender: FDA-Public Use
  Company Number: DE-TEVA-209860ISR

PATIENT
  Sex: Female
  Weight: 54 kg

DRUGS (3)
  1. FLUOROURACIL [Suspect]
     Route: 042
     Dates: start: 20090810, end: 20090814
  2. BISOPROLOL [Concomitant]
     Indication: HYPERTENSION
     Route: 048
  3. LERCANIDIPINE [Concomitant]
     Indication: HYPERTENSION

REACTIONS (2)
  - BLOOD BILIRUBIN INCREASED [None]
  - PROTHROMBIN TIME SHORTENED [None]
